FAERS Safety Report 7164271-3 (Version None)
Quarter: 2010Q4

REPORT INFORMATION
  Report Type: 
  Country: None (occurrence: None)
  Receive Date: 20101215
  Receipt Date: 20101213
  Transmission Date: 20110411
  Serious: Yes (Other)
  Sender: FDA-Public Use
  Company Number: CHPA2010US18933

PATIENT
  Age: 55 Year
  Sex: Female
  Weight: 90.703 kg

DRUGS (2)
  1. PRIVATE LABEL (NCH) [Suspect]
     Indication: SMOKING CESSATION THERAPY
     Dosage: 21 MG, QD
     Route: 062
     Dates: start: 20070401, end: 20070401
  2. PRIVATE LABEL (NCH) [Suspect]
     Dosage: 14 MG, QD
     Route: 062
     Dates: start: 20070401, end: 20070401

REACTIONS (2)
  - DIABETES MELLITUS [None]
  - INAPPROPRIATE SCHEDULE OF DRUG ADMINISTRATION [None]
